FAERS Safety Report 16420106 (Version 3)
Quarter: 2019Q2

REPORT INFORMATION
  Report Type: Spontaneous
  Country: US (occurrence: US)
  Receive Date: 20190612
  Receipt Date: 20190619
  Transmission Date: 20190711
  Serious: No
  Sender: FDA-Public Use
  Company Number: US-ALLERGAN-1913366US

PATIENT
  Sex: Female

DRUGS (1)
  1. MICROGESTIN 1.5/30 [Suspect]
     Active Substance: ETHINYL ESTRADIOL\NORETHINDRONE ACETATE
     Indication: CONTRACEPTION

REACTIONS (4)
  - Product dose omission [Unknown]
  - Incorrect drug administration rate [Unknown]
  - Menstrual disorder [Unknown]
  - Metrorrhagia [Unknown]
